FAERS Safety Report 6492548-3 (Version None)
Quarter: 2009Q4

REPORT INFORMATION
  Report Type: 
  Country: None (occurrence: None)
  Receive Date: 20091214
  Receipt Date: 20091207
  Transmission Date: 20100525
  Serious: Yes (Disabling)
  Sender: FDA-Public Use
  Company Number: NL-ROCHE-673108

PATIENT
  Sex: Female

DRUGS (9)
  1. CAPECITABINE [Suspect]
     Dosage: LAST DOSE PRIOR TO SAE: 14 AUG 2009
     Route: 048
     Dates: start: 20090422
  2. CAPECITABINE [Suspect]
     Route: 048
     Dates: start: 20091126
  3. BEVACIZUMAB [Suspect]
     Route: 042
     Dates: start: 20090422, end: 20090624
  4. TAXOL [Suspect]
     Route: 042
     Dates: start: 20090422, end: 20090812
  5. PAMIDRONATE DISODIUM [Concomitant]
     Dates: start: 20090429
  6. LEVOTIROXINA SODICA [Concomitant]
  7. CLOPIDOGREL [Concomitant]
     Dates: start: 20090710
  8. PREGABALIN [Concomitant]
     Dates: start: 20090804
  9. SIMVASTATIN [Concomitant]
     Dates: start: 20090710

REACTIONS (2)
  - ACNE [None]
  - PALMAR-PLANTAR ERYTHRODYSAESTHESIA SYNDROME [None]
